FAERS Safety Report 11572251 (Version 2)
Quarter: 2016Q1

REPORT INFORMATION
  Report Type: Spontaneous
  Country: US (occurrence: US)
  Receive Date: 20150929
  Receipt Date: 20160310
  Transmission Date: 20160525
  Serious: Yes (Other)
  Sender: FDA-Public Use
  Company Number: US-PFIZER INC-2015323599

PATIENT
  Age: 70 Year
  Sex: Female
  Weight: 59 kg

DRUGS (1)
  1. LIPITOR [Suspect]
     Active Substance: ATORVASTATIN CALCIUM
     Indication: BLOOD CHOLESTEROL ABNORMAL
     Dosage: UNK, 1X/DAY (ONE PER DAY)
     Route: 048
     Dates: start: 20111020, end: 2012

REACTIONS (2)
  - Type 2 diabetes mellitus [Not Recovered/Not Resolved]
  - Neuropathy peripheral [Unknown]

NARRATIVE: CASE EVENT DATE: 20120515
